FAERS Safety Report 5475406-2 (Version None)
Quarter: 2007Q4

REPORT INFORMATION
  Report Type: 
  Country: None (occurrence: None)
  Receive Date: 20071003
  Receipt Date: 20070926
  Transmission Date: 20080405
  Serious: Yes (Other)
  Sender: FDA-Public Use
  Company Number: PHBS2007IT15580

PATIENT
  Sex: Female

DRUGS (6)
  1. ZOMETA [Suspect]
     Indication: METASTASES TO BONE
     Route: 042
     Dates: start: 20050101
  2. ARIMIDEX [Concomitant]
     Dates: start: 20050101
  3. CAPECITABINE [Concomitant]
     Dates: start: 20060301
  4. VINORELBINE [Concomitant]
     Dates: start: 20060701
  5. TAXOL [Concomitant]
     Dates: start: 20070401
  6. FEC [Concomitant]
     Dates: start: 20070601

REACTIONS (1)
  - METRORRHAGIA [None]
